FAERS Safety Report 18538168 (Version 2)
Quarter: 2020Q4

REPORT INFORMATION
  Report Type: Spontaneous
  Country: US (occurrence: US)
  Receive Date: 20201124
  Receipt Date: 20201221
  Transmission Date: 20210114
  Serious: Yes (Other)
  Sender: FDA-Public Use
  Company Number: US-BAUSCH-BL-2020-033213

PATIENT
  Age: 61 Year
  Sex: Male

DRUGS (3)
  1. LISINOPRIL AND HYDROCHLOROTHIAZIDE [Concomitant]
     Active Substance: HYDROCHLOROTHIAZIDE\LISINOPRIL
     Indication: PRODUCT USED FOR UNKNOWN INDICATION
  2. LUMIFY [Suspect]
     Active Substance: BRIMONIDINE TARTRATE
     Indication: OCULAR HYPERAEMIA
     Dosage: APPROXIMATELY ^^MONTHS AGO^^, ONE DROP IN BOTH EYES, ONE TO TWO TIMES DAILY
     Route: 047
     Dates: start: 2020, end: 2020
  3. LUMIFY [Suspect]
     Active Substance: BRIMONIDINE TARTRATE
     Dosage: ONE DROP IN BOTH EYES ONE TO TWO TIMES DAILY
     Route: 047
     Dates: start: 20201108

REACTIONS (6)
  - Eye pain [Recovered/Resolved]
  - Drug ineffective [Unknown]
  - Asthenopia [Recovered/Resolved]
  - Product quality issue [Unknown]
  - Hypoaesthesia eye [Recovered/Resolved]
  - Dry eye [Unknown]

NARRATIVE: CASE EVENT DATE: 202011
